FAERS Safety Report 15392757 (Version 1)
Quarter: 2018Q4

REPORT INFORMATION
  Report Type: Spontaneous
  Country: NL (occurrence: NL)
  Receive Date: 20180917
  Receipt Date: 20180917
  Transmission Date: 20190204
  Serious: Yes (Hospitalization)
  Sender: FDA-Public Use
  Company Number: NL-TEVA-2018-NL-955031

PATIENT
  Age: 36 Year
  Sex: Male

DRUGS (14)
  1. COTRIMOXAZOL TABLET, 160/800 MG (MILLIGRAM) [Suspect]
     Active Substance: SULFAMETHOXAZOLE\TRIMETHOPRIM
     Indication: PROTEUS INFECTION
  2. PARACETAMOL 500MG [Concomitant]
     Active Substance: ACETAMINOPHEN
     Dosage: 4 DD 2
  3. VALPROINEZUUR 500MG [Concomitant]
     Dosage: 1000 MILLIGRAM DAILY;
  4. LORAZEPAM 0,25MG [Concomitant]
  5. MOVICOLON [Concomitant]
     Active Substance: POLYETHYLENE GLYCOL 3350\POTASSIUM CHLORIDE\SODIUM BICARBONATE\SODIUM CHLORIDE
     Dosage: 2 DOSAGE FORMS DAILY;
  6. TRAMADOL 50MG [Concomitant]
     Active Substance: TRAMADOL
     Dosage: 100 MILLIGRAM DAILY;
  7. CITALOPRAM [Concomitant]
     Active Substance: CITALOPRAM HYDROBROMIDE
     Dosage: 20 MILLIGRAM DAILY;
  8. AUGMENTIN [Concomitant]
     Active Substance: AMOXICILLIN\CLAVULANATE POTASSIUM
     Dosage: 1 DOSAGE FORMS DAILY; 1DD 500/125MG (T/M 25-08)
     Dates: end: 20180825
  9. MACROGOL [Concomitant]
     Active Substance: POLYETHYLENE GLYCOLS
     Dosage: 1 DOSAGE FORMS DAILY;
  10. MELATONINE 5MG [Concomitant]
     Dosage: 5 MILLIGRAM DAILY;
  11. DIAZEPAM. [Concomitant]
     Active Substance: DIAZEPAM
     Dosage: Z.N. 10MG
  12. PANTOPRAZOL 20MG [Concomitant]
     Dosage: 40 MILLIGRAM DAILY;
  13. COTRIMOXAZOL TABLET, 160/800 MG (MILLIGRAM) [Suspect]
     Active Substance: SULFAMETHOXAZOLE\TRIMETHOPRIM
     Indication: UROSEPSIS
     Dosage: 2 DOSAGE FORMS DAILY;
     Dates: start: 20180809, end: 20180820
  14. CHOLECALCIFEROL 800 I.E [Concomitant]
     Route: 065

REACTIONS (1)
  - Pancytopenia [Unknown]

NARRATIVE: CASE EVENT DATE: 20180822
